FAERS Safety Report 5843952-5 (Version None)
Quarter: 2008Q3

REPORT INFORMATION
  Report Type: 
  Country: None (occurrence: None)
  Receive Date: 20080808
  Receipt Date: 20080729
  Transmission Date: 20090109
  Serious: Yes (Death)
  Sender: FDA-Public Use
  Company Number: 1000000393

PATIENT

DRUGS (3)
  1. DINOPROSTONE DINOPROSTONE) (10 MILLIGRAM, VAGINAL INSERT) [Suspect]
     Dosage: 10 MG, ONCE, TRANSPLACENTAL
     Route: 064
     Dates: start: 20080417, end: 20080417
  2. AMOXICILLIN [Concomitant]
  3. ECONAZOLE NITRATE [Concomitant]

REACTIONS (6)
  - BRAIN DEATH [None]
  - CAESAREAN SECTION [None]
  - FOETAL DISTRESS SYNDROME [None]
  - FOETAL HEART RATE DISORDER [None]
  - MATERNAL DRUGS AFFECTING FOETUS [None]
  - STILLBIRTH [None]
